FAERS Safety Report 6516854-9 (Version None)
Quarter: 2009Q4

REPORT INFORMATION
  Report Type: 
  Country: None (occurrence: None)
  Receive Date: 20091223
  Receipt Date: 20091221
  Transmission Date: 20100525
  Serious: Yes (Hospitalization)
  Sender: FDA-Public Use
  Company Number: PHHO2009JO15770

PATIENT
  Sex: Male
  Weight: 95 kg

DRUGS (1)
  1. AFINITOR [Suspect]
     Indication: METASTATIC RENAL CELL CARCINOMA
     Dosage: 10 MG
     Route: 048
     Dates: start: 20091126, end: 20091219

REACTIONS (4)
  - BONE MARROW FAILURE [None]
  - LIP AND/OR ORAL CAVITY CANCER [None]
  - ORAL CANDIDIASIS [None]
  - TUMOUR HAEMORRHAGE [None]
